FAERS Safety Report 15939587 (Version 2)
Quarter: 2019Q2

REPORT INFORMATION
  Report Type: Spontaneous
  Country: CA (occurrence: CA)
  Receive Date: 20190208
  Receipt Date: 20190507
  Transmission Date: 20190711
  Serious: Yes (Other)
  Sender: FDA-Public Use
  Company Number: CA-PFIZER INC-2019055795

PATIENT
  Age: 49 Year
  Sex: Female
  Weight: 86 kg

DRUGS (1)
  1. METHOTREXATE SODIUM. [Suspect]
     Active Substance: METHOTREXATE SODIUM
     Dosage: 0.6 ML, WEEKLY
     Route: 058

REACTIONS (6)
  - Lacrimation increased [Not Recovered/Not Resolved]
  - Cyst [Unknown]
  - Nasopharyngitis [Not Recovered/Not Resolved]
  - Rheumatoid arthritis [Not Recovered/Not Resolved]
  - Drug ineffective [Unknown]
  - Eye swelling [Not Recovered/Not Resolved]
